FAERS Safety Report 5697330-2 (Version None)
Quarter: 2008Q2

REPORT INFORMATION
  Report Type: 
  Country: None (occurrence: None)
  Receive Date: 20080408
  Receipt Date: 20080331
  Transmission Date: 20081010
  Serious: Yes (Hospitalization)
  Sender: FDA-Public Use
  Company Number: US-BAYER-200715155NA

PATIENT
  Age: 57 Year
  Sex: Male
  Weight: 54 kg

DRUGS (6)
  1. NEXAVAR [Suspect]
     Indication: RENAL CELL CARCINOMA
     Dosage: TOTAL DAILY DOSE: 800 MG  UNIT DOSE: 200 MG
     Route: 048
     Dates: start: 20070918, end: 20070923
  2. NEXAVAR [Suspect]
     Dosage: TOTAL DAILY DOSE: 400 MG  UNIT DOSE: 200 MG
     Route: 048
     Dates: start: 20071001, end: 20071015
  3. LISINOPRIL [Concomitant]
     Indication: HYPERTENSION
  4. MELOXICAM [Concomitant]
     Indication: HYPERTENSION
  5. AMLODIPINE [Concomitant]
     Indication: HYPERTENSION
  6. PRILOSEC [Concomitant]

REACTIONS (3)
  - ERYTHEMA [None]
  - HEADACHE [None]
  - HYPERTENSION [None]
